FAERS Safety Report 12195477 (Version 1)
Quarter: 2016Q1

REPORT INFORMATION
  Report Type: Report from Study
  Country: US (occurrence: US)
  Receive Date: 20160321
  Receipt Date: 20160321
  Transmission Date: 20160526
  Serious: No
  Sender: FDA-Public Use
  Company Number: US-REGENERON PHARMACEUTICALS, INC.-2015-11722

PATIENT

DRUGS (1)
  1. ARCALYST [Suspect]
     Active Substance: RILONACEPT
     Indication: PRODUCT USED FOR UNKNOWN INDICATION
     Dosage: 160 MG MILLIGRAM(S), WEEKLY
     Route: 058
     Dates: start: 201408

REACTIONS (1)
  - Abdominal discomfort [Unknown]
